FAERS Safety Report 8000379-8 (Version None)
Quarter: 2011Q4

REPORT INFORMATION
  Report Type: 
  Country: None (occurrence: None)
  Receive Date: 20111222
  Receipt Date: 20111213
  Transmission Date: 20120403
  Serious: Yes (Hospitalization)
  Sender: FDA-Public Use
  Company Number: US-BAYER-2011-033673

PATIENT
  Age: 25 Year
  Sex: Female
  Weight: 78.912 kg

DRUGS (8)
  1. YASMIN [Suspect]
     Indication: MENSTRUATION IRREGULAR
  2. TOPRILEM [Concomitant]
     Dosage: UNK
     Dates: start: 20060101
  3. ANTIBIOTICS [Concomitant]
  4. IBUPROFEN [Concomitant]
  5. YASMIN [Suspect]
     Indication: CONTRACEPTION
     Dosage: UNK
     Route: 048
     Dates: start: 20040801, end: 20080601
  6. DROSPIRENONE AND ETHINYL ESTRADIOL [Suspect]
     Indication: CONTRACEPTION
     Dosage: UNK
     Route: 048
     Dates: start: 20080701, end: 20081101
  7. DROSPIRENONE AND ETHINYL ESTRADIOL [Suspect]
     Indication: MENSTRUATION IRREGULAR
  8. LISINOPRIL [Concomitant]
     Dosage: UNK
     Dates: start: 20060101

REACTIONS (7)
  - CHOLECYSTITIS [None]
  - HEART RATE INCREASED [None]
  - PAIN [None]
  - ABDOMINAL PAIN UPPER [None]
  - CHOLELITHIASIS [None]
  - HYPERTENSION [None]
  - PHLEBITIS [None]
